FAERS Safety Report 12476362 (Version 1)
Quarter: 2016Q2

REPORT INFORMATION
  Report Type: Spontaneous
  Country: US (occurrence: US)
  Receive Date: 20160617
  Receipt Date: 20160617
  Transmission Date: 20160815
  Serious: Yes (Hospitalization)
  Sender: FDA-Public Use
  Company Number: US-ACTELION-A-NJ2016-137608

PATIENT
  Age: 59 Year
  Sex: Female

DRUGS (1)
  1. VELETRI [Suspect]
     Active Substance: EPOPROSTENOL
     Indication: PULMONARY HYPERTENSION
     Dosage: 79 NG/KG, PER MIN
     Route: 042
     Dates: start: 20121119

REACTIONS (3)
  - Biliary drainage [Unknown]
  - Bile duct obstruction [Unknown]
  - Endoscopic retrograde cholangiopancreatography abnormal [Unknown]

NARRATIVE: CASE EVENT DATE: 20160603
